FAERS Safety Report 15478229 (Version 1)
Quarter: 2018Q4

REPORT INFORMATION
  Report Type: Spontaneous
  Country: US (occurrence: US)
  Receive Date: 20181002
  Receipt Date: 20181002
  Transmission Date: 20190205
  Serious: Yes (Hospitalization)
  Sender: FDA-Public Use
  Company Number: None

PATIENT
  Age: 20 Year
  Sex: Female

DRUGS (13)
  1. ZOFRAN [Concomitant]
     Active Substance: ONDANSETRON HYDROCHLORIDE
  2. TACROLIMUS. [Suspect]
     Active Substance: TACROLIMUS
     Indication: RENAL TRANSPLANT
     Route: 048
     Dates: start: 20180509
  3. RANITIDINE. [Concomitant]
     Active Substance: RANITIDINE
  4. TACROLIMUS. [Suspect]
     Active Substance: TACROLIMUS
     Indication: RENAL TRANSPLANT
     Route: 048
     Dates: start: 20180509
  5. COENZYME [Concomitant]
     Active Substance: UBIDECARENONE
  6. LEVOCARNITIN [Concomitant]
  7. NYSTATIN. [Concomitant]
     Active Substance: NYSTATIN
  8. VITAMIN E [Concomitant]
     Active Substance: .ALPHA.-TOCOPHEROL
  9. AMOXICILLIN. [Concomitant]
     Active Substance: AMOXICILLIN
  10. METOPROLOL TAR [Concomitant]
     Active Substance: METOPROLOL TARTRATE
  11. ATOVAQUONE. [Concomitant]
     Active Substance: ATOVAQUONE
  12. FERROUS SULF [Concomitant]
     Active Substance: FERROUS SULFATE
  13. PREDNISONE. [Concomitant]
     Active Substance: PREDNISONE

REACTIONS (1)
  - Pyrexia [None]

NARRATIVE: CASE EVENT DATE: 20181001
